FAERS Safety Report 13520881 (Version 1)
Quarter: 2017Q2

REPORT INFORMATION
  Report Type: Spontaneous
  Country: US (occurrence: US)
  Receive Date: 20170508
  Receipt Date: 20170508
  Transmission Date: 20170830
  Serious: No
  Sender: FDA-Public Use
  Company Number: US-BRISTOL-MYERS SQUIBB COMPANY-BMS-2017-036739

PATIENT
  Sex: Female
  Weight: 49.89 kg

DRUGS (1)
  1. ELIQUIS [Suspect]
     Active Substance: APIXABAN
     Indication: CEREBROVASCULAR ACCIDENT PROPHYLAXIS
     Dosage: 5 MG, BID
     Route: 048

REACTIONS (12)
  - Retching [Unknown]
  - Lactose intolerance [Unknown]
  - Headache [Unknown]
  - Eye pain [Unknown]
  - Dry throat [Unknown]
  - Glossitis [Unknown]
  - Dysphagia [Unknown]
  - Respiratory tract congestion [Unknown]
  - Throat irritation [Unknown]
  - Sinus disorder [Unknown]
  - Adverse event [Unknown]
  - Dry eye [Unknown]
